FAERS Safety Report 5255114-3 (Version None)
Quarter: 2007Q1

REPORT INFORMATION
  Report Type: 
  Country: None (occurrence: None)
  Receive Date: 20070305
  Receipt Date: 20070228
  Transmission Date: 20070707
  Serious: Yes (Death)
  Sender: FDA-Public Use
  Company Number: PHBS2007JP02922

PATIENT
  Age: 65 Year
  Sex: Female
  Weight: 60 kg

DRUGS (39)
  1. NEORAL [Suspect]
     Indication: INTERSTITIAL LUNG DISEASE
     Dosage: 100 MG/D
     Route: 048
     Dates: start: 20070208, end: 20070217
  2. FUTHAN [Concomitant]
     Route: 065
  3. ELASPOL [Concomitant]
     Dosage: 400 MG/D
     Route: 042
     Dates: start: 20070208, end: 20070219
  4. ENDOXAN [Concomitant]
     Dosage: 700 MG/D
     Route: 042
     Dates: start: 20070208
  5. RINDERON [Concomitant]
     Dosage: 5 MG/D
     Route: 042
     Dates: start: 20070201
  6. FIRSTCIN [Concomitant]
     Dosage: 2 G/D
     Route: 042
     Dates: start: 20070205, end: 20070208
  7. FUNGUARD [Concomitant]
     Dosage: 100 MG/D
     Route: 042
     Dates: start: 20070205, end: 20070215
  8. SOLU-MEDROL [Concomitant]
     Dosage: 500 MG/D
     Route: 042
     Dates: start: 20070205
  9. SOLU-MEDROL [Concomitant]
     Dosage: 500 MG/D
     Route: 042
  10. SOLU-MEDROL [Concomitant]
     Dosage: 1000 MG/D
     Route: 042
  11. SOLU-MEDROL [Concomitant]
     Dosage: 1000 MG/D
     Route: 042
  12. MEROPEN [Concomitant]
     Dosage: 0.5 G/D
     Route: 042
     Dates: start: 20070201, end: 20070201
  13. MEROPEN [Concomitant]
     Dosage: 1 G/D
     Route: 042
  14. MEROPEN [Concomitant]
     Dosage: 1 G/D
     Route: 042
  15. ATARAX [Concomitant]
     Dosage: 25 MG/D
     Route: 042
     Dates: start: 20070212, end: 20070214
  16. FINIBAX [Concomitant]
     Dosage: 0.5 G/D
     Route: 042
     Dates: start: 20070213, end: 20070215
  17. BAKTAR [Concomitant]
     Dosage: 1 G/D
     Route: 048
     Dates: start: 20070216
  18. BAKTAR [Concomitant]
     Dosage: 1 DF, QD
     Route: 048
     Dates: start: 20070205, end: 20070215
  19. PREDONINE [Concomitant]
     Dosage: 30 MG/D
     Route: 048
     Dates: start: 20070208
  20. PREDONINE [Concomitant]
     Dosage: 60 MG/D
     Route: 042
     Dates: start: 20070209, end: 20070213
  21. ELEMENMIC [Concomitant]
     Dosage: 2 ML/D
     Route: 042
     Dates: start: 20070210, end: 20070213
  22. SODIUM CHLORIDE [Concomitant]
     Dosage: 40 ML/D
     Route: 042
     Dates: start: 20070210, end: 20070213
  23. GLUCOSE [Concomitant]
     Dosage: 500 ML/D
     Route: 042
     Dates: start: 20070210, end: 20070217
  24. NAFAMOSTAT MESILATE [Concomitant]
     Dosage: 100 MG/D
     Route: 042
     Dates: start: 20070210
  25. NAFAMOSTAT MESILATE [Concomitant]
     Dosage: 200 MG/D
     Route: 042
     Dates: end: 20070217
  26. NOVOLIN R [Concomitant]
     Route: 058
     Dates: start: 20070207, end: 20070216
  27. ACTIT [Concomitant]
     Dosage: 500 ML/D
     Route: 042
     Dates: start: 20070208, end: 20070209
  28. LASIX [Concomitant]
     Dosage: 20 MG/SD
     Route: 042
     Dates: start: 20070208
  29. TAKEPRON [Concomitant]
     Dosage: 15 MG/D
     Route: 048
     Dates: start: 20070208, end: 20070215
  30. GLYCERIN [Concomitant]
     Dosage: 60 ML/D
     Dates: start: 20070211, end: 20070216
  31. BISOLVON [Concomitant]
     Dosage: 2 ML/D
     Dates: start: 20070211, end: 20070216
  32. LOXONIN [Concomitant]
     Dosage: 60 MG/D
     Route: 048
     Dates: start: 20070212
  33. MUCOSTA [Concomitant]
     Dosage: 300 MG/D
     Route: 048
     Dates: start: 20070213, end: 20070217
  34. VENA PASTA [Concomitant]
     Route: 061
     Dates: start: 20070215
  35. ROCAIN [Concomitant]
     Dosage: 4 ML/D
     Route: 042
     Dates: start: 20070201
  36. PACIL [Concomitant]
     Dosage: 500 MG/D
     Route: 042
     Dates: start: 20070208
  37. PACIL [Concomitant]
     Dosage: 1000 MG/D
     Route: 042
     Dates: end: 20070213
  38. OMEPRAL [Concomitant]
     Dosage: 20 MG/D
     Route: 042
     Dates: start: 20070209, end: 20070212
  39. FULCALIQ 3 [Concomitant]
     Dosage: 1103 ML/D
     Route: 042
     Dates: start: 20070210, end: 20070213

REACTIONS (2)
  - HYPERCALCAEMIA [None]
  - INTERSTITIAL LUNG DISEASE [None]
